FAERS Safety Report 8542669-6 (Version None)
Quarter: 2012Q3

REPORT INFORMATION
  Report Type: 
  Country: None (occurrence: None)
  Receive Date: 20120727
  Receipt Date: 20120723
  Transmission Date: 20120928
  Serious: Yes (Other)
  Sender: FDA-Public Use
  Company Number: US-009507513-1207USA009570

PATIENT

DRUGS (1)
  1. JANUMET [Suspect]
     Dosage: 2 DF, QD
     Route: 048

REACTIONS (3)
  - ASTHENIA [None]
  - SOMNOLENCE [None]
  - DIZZINESS [None]
